FAERS Safety Report 7236029-8 (Version None)
Quarter: 2011Q1

REPORT INFORMATION
  Report Type: 
  Country: None (occurrence: None)
  Receive Date: 20110120
  Receipt Date: 20110111
  Transmission Date: 20110831
  Serious: Yes (Hospitalization)
  Sender: FDA-Public Use
  Company Number: US-BAYER-2011-003978

PATIENT
  Sex: Male

DRUGS (4)
  1. INTERFERON BETA-1B [Suspect]
     Indication: MULTIPLE SCLEROSIS
     Dosage: 8 MIU, QOD
     Route: 058
     Dates: start: 20040824
  2. INTERFERON BETA-1B [Suspect]
     Dosage: UNK
     Dates: start: 20040112, end: 20040706
  3. ANTIBIOTICS [Concomitant]
     Route: 048
  4. ANTIBIOTICS [Concomitant]
     Dosage: UNK, BID
     Route: 042
     Dates: end: 20110102

REACTIONS (3)
  - INJECTION SITE PAIN [None]
  - GAIT DISTURBANCE [None]
  - INJECTION SITE INDURATION [None]
